FAERS Safety Report 8808447 (Version 1)
Quarter: 2012Q4

REPORT INFORMATION
  Report Type: Spontaneous
  Country: US (occurrence: None)
  Receive Date: 20120919
  Receipt Date: 20120919
  Transmission Date: 20130627
  Serious: Yes (Death, Other)
  Sender: FDA-Public Use
  Company Number: DSA_59403_2012

PATIENT
  Age: 63 Year
  Sex: Male
  Weight: 73.94 kg

DRUGS (1)
  1. VASOTEC [Suspect]
     Indication: HYPERTENSION
     Dosage: (DF ORAL) ( 34 weeks 6 days until continuing)
     Route: 048

REACTIONS (3)
  - Asphyxia [None]
  - Angioedema [None]
  - Upper airway obstruction [None]
